FAERS Safety Report 13862909 (Version 2)
Quarter: 2017Q4

REPORT INFORMATION
  Report Type: Spontaneous
  Country: ES (occurrence: ES)
  Receive Date: 20170814
  Receipt Date: 20171130
  Transmission Date: 20180320
  Serious: Yes (Hospitalization)
  Sender: FDA-Public Use
  Company Number: ES-SUN PHARMACEUTICAL INDUSTRIES LTD-2017R1-147440

PATIENT
  Age: 53 Year
  Sex: Female

DRUGS (1)
  1. DIGOXIN. [Suspect]
     Active Substance: DIGOXIN
     Indication: SUICIDE ATTEMPT
     Dosage: 30 MG
     Route: 065

REACTIONS (4)
  - Toxicity to various agents [Recovering/Resolving]
  - Electrocardiogram abnormal [Recovering/Resolving]
  - Atrial flutter [Recovering/Resolving]
  - Suicide attempt [Recovering/Resolving]
